FAERS Safety Report 12287247 (Version 1)
Quarter: 2016Q2

REPORT INFORMATION
  Report Type: Spontaneous
  Country: US (occurrence: US)
  Receive Date: 20160420
  Receipt Date: 20160420
  Transmission Date: 20160815
  Serious: Yes (Other)
  Sender: FDA-Public Use
  Company Number: US-PIERREL PHARMA S.P.A.-2015PIR00023

PATIENT
  Sex: Female

DRUGS (1)
  1. ORABLOC [Suspect]
     Active Substance: ARTICAINE HYDROCHLORIDE\EPINEPHRINE BITARTRATE
     Indication: APPLICATION SITE HYPOAESTHESIA
     Dosage: .5 UNK, ONCE
     Route: 048
     Dates: start: 20151026, end: 20151026

REACTIONS (1)
  - Ischaemia [Not Recovered/Not Resolved]
